FAERS Safety Report 15602535 (Version 1)
Quarter: 2018Q4

REPORT INFORMATION
  Report Type: Spontaneous
  Country: GB (occurrence: GB)
  Receive Date: 20181109
  Receipt Date: 20181109
  Transmission Date: 20190205
  Serious: Yes (Death)
  Sender: FDA-Public Use
  Company Number: GB-SA-2018SA308065

PATIENT
  Age: 71 Year
  Sex: Male
  Weight: 92 kg

DRUGS (15)
  1. ACETYLSALICYLIC ACID [Suspect]
     Active Substance: ASPIRIN
     Indication: MYOCARDIAL INFARCTION
     Dosage: 75 MG, UNK
     Route: 048
     Dates: start: 20180822, end: 20180824
  2. MIRABEGRON [Concomitant]
     Active Substance: MIRABEGRON
  3. FOSTAIR [Suspect]
     Active Substance: BECLOMETHASONE\FORMOTEROL
  4. ENOXAPARIN SODIUM. [Suspect]
     Active Substance: ENOXAPARIN SODIUM
     Indication: MYOCARDIAL INFARCTION
     Dosage: 92 MG, UNK
     Route: 058
     Dates: start: 20180822, end: 20180824
  5. AMLODIPINE [Concomitant]
     Active Substance: AMLODIPINE BESYLATE
  6. SIMVASTATIN. [Concomitant]
     Active Substance: SIMVASTATIN
  7. ACETYLSALICYLIC ACID [Concomitant]
     Active Substance: ASPIRIN
  8. CLOPIDOGREL BISULFATE. [Suspect]
     Active Substance: CLOPIDOGREL BISULFATE
     Indication: MYOCARDIAL INFARCTION
     Dosage: 75 MG
     Route: 048
     Dates: start: 20180822, end: 20180824
  9. FONDAPARINUX SODIUM. [Concomitant]
     Active Substance: FONDAPARINUX SODIUM
  10. PARACETAMOL [Concomitant]
     Active Substance: ACETAMINOPHEN
  11. MORPHINE [Concomitant]
     Active Substance: MORPHINE
  12. TAMSULOSIN [Concomitant]
     Active Substance: TAMSULOSIN
  13. BISOPROLOL FUMARATE. [Concomitant]
     Active Substance: BISOPROLOL FUMARATE
  14. LANSOPRAZOLE. [Concomitant]
     Active Substance: LANSOPRAZOLE
  15. SALBUTAMOL [Concomitant]
     Active Substance: ALBUTEROL

REACTIONS (3)
  - Spinal cord haemorrhage [Fatal]
  - Sensory loss [Fatal]
  - Extradural haematoma [Fatal]

NARRATIVE: CASE EVENT DATE: 20180824
